FAERS Safety Report 24155704 (Version 1)
Quarter: 2024Q3

REPORT INFORMATION
  Report Type: Report from Study
  Country: US (occurrence: US)
  Receive Date: 20240731
  Receipt Date: 20240731
  Transmission Date: 20241017
  Serious: Yes (Death, Hospitalization)
  Sender: INSMED
  Company Number: US-INSMED-2023-04912-USAA

PATIENT
  Sex: Male

DRUGS (1)
  1. ARIKAYCE [Suspect]
     Active Substance: AMIKACIN
     Indication: Mycobacterial infection
     Dosage: 590 MILLIGRAM, QD
     Route: 055

REACTIONS (7)
  - Death [Fatal]
  - Intestinal obstruction [Unknown]
  - Anger [Unknown]
  - Frustration tolerance decreased [Unknown]
  - Intentional dose omission [Unknown]
  - Device issue [Unknown]
  - Drug dose omission by device [Unknown]

NARRATIVE: CASE EVENT DATE: 20230101
